FAERS Safety Report 4779851-X (Version None)
Quarter: 2005Q3

REPORT INFORMATION
  Report Type: 
  Country: None (occurrence: None)
  Receive Date: 20050914
  Receipt Date: 20050422
  Transmission Date: 20060218
  Serious: Yes (Hospitalization, Other)
  Sender: FDA-Public Use
  Company Number: 163-20785-04020710

PATIENT
  Age: 55 Year
  Sex: Male

DRUGS (17)
  1. THALOMID [Suspect]
     Indication: MULTIPLE MYELOMA
     Dosage: 400 MG, DAILY, ORAL
     Route: 048
     Dates: start: 20030816, end: 20031104
  2. CYCLOPHOSPHAMIDE [Suspect]
     Indication: MULTIPLE MYELOMA
     Dosage: 750 MG/M2, INTRAVENOUS
     Route: 042
     Dates: start: 20031106, end: 20031109
  3. ADRIAMYCIN PFS [Suspect]
     Indication: MULTIPLE MYELOMA
     Dosage: 15 MG/M2, INTRAVENOUS
     Route: 042
     Dates: start: 20031106, end: 20031109
  4. DEXAMETHASONE [Suspect]
     Indication: MULTIPLE MYELOMA
     Dosage: 40 MG, DAILY, ORAL
     Route: 048
     Dates: start: 20031106, end: 20031109
  5. QUINOLONE (QUINOLONE ANTIBACTERIALS) [Suspect]
  6. BACTRIM [Suspect]
     Indication: INFECTION PROPHYLAXIS
     Dosage: 2 TABS 3X WEEKLY, ORAL
     Route: 048
     Dates: start: 20030816, end: 20030825
  7. ZOSYN [Suspect]
  8. AUGMENTIN '125' [Concomitant]
  9. MAGNESIUM OXIDE [Concomitant]
  10. ACYCLOVIR [Concomitant]
  11. FLUCONAZOLE [Concomitant]
  12. COZAAR [Concomitant]
  13. MULTIVITAMIN [Concomitant]
  14. VALSARTAN [Concomitant]
  15. G-CSF (GRANULOCYTE COLONY STIMULATING FACTOR) [Concomitant]
  16. LOVENOX [Concomitant]
  17. COMPAZINE [Concomitant]

REACTIONS (15)
  - ANAEMIA [None]
  - BLOOD CREATININE INCREASED [None]
  - BLOOD SODIUM DECREASED [None]
  - C-REACTIVE PROTEIN INCREASED [None]
  - DEHYDRATION [None]
  - MENTAL STATUS CHANGES [None]
  - NEUTROPENIA [None]
  - PARAINFLUENZAE VIRUS INFECTION [None]
  - PLATELET COUNT DECREASED [None]
  - PNEUMONITIS [None]
  - PYREXIA [None]
  - RASH [None]
  - RENAL FAILURE [None]
  - SINUSITIS [None]
  - WHITE BLOOD CELL COUNT DECREASED [None]
